FAERS Safety Report 8203258-6 (Version None)
Quarter: 2012Q1

REPORT INFORMATION
  Report Type: 
  Country: None (occurrence: None)
  Receive Date: 20120312
  Receipt Date: 20120308
  Transmission Date: 20120608
  Serious: Yes (Death, Hospitalization)
  Sender: FDA-Public Use
  Company Number: US-B.I. PHARMACEUTICALS,INC./RIDGEFIELD-2011-BP-25537BP

PATIENT
  Age: 78 Year
  Sex: Female
  Weight: 80 kg

DRUGS (11)
  1. PROPAFENONE HCL [Concomitant]
  2. IBANDRONATE SODIUM [Concomitant]
  3. VITAMIN D [Concomitant]
  4. FISH OIL [Concomitant]
  5. TIOTROPIUM [Concomitant]
  6. RAMIPRIL [Concomitant]
  7. PRADAXA [Suspect]
     Indication: ATRIAL FIBRILLATION
     Dosage: 300 MG
     Route: 048
  8. FUROSEMIDE [Concomitant]
  9. DOXEPIN HCL [Concomitant]
  10. ASPIRIN [Concomitant]
  11. ALBUTEROL [Concomitant]

REACTIONS (9)
  - HYPOTENSION [None]
  - CONTUSION [None]
  - INTRA-ABDOMINAL HAEMORRHAGE [None]
  - RECTAL HAEMORRHAGE [None]
  - RENAL FAILURE [None]
  - COAGULOPATHY [None]
  - PULMONARY HAEMORRHAGE [None]
  - SUBARACHNOID HAEMORRHAGE [None]
  - HAEMORRHAGE [None]
